FAERS Safety Report 4332764-X (Version None)
Quarter: 2004Q1

REPORT INFORMATION
  Report Type: 
  Country: None (occurrence: None)
  Receive Date: 20040330
  Receipt Date: 20040312
  Transmission Date: 20041129
  Serious: Yes (Hospitalization)
  Sender: FDA-Public Use
  Company Number: MEDI-0001555

PATIENT
  Age: 53 Year
  Sex: Female

DRUGS (2)
  1. ETHYOL [Suspect]
     Indication: RADIOTHERAPY
     Dosage: 310 MG, QD, INTRAVENOUS
     Route: 042
     Dates: start: 20040216, end: 20040301
  2. RADIATION THERAPY [Concomitant]

REACTIONS (4)
  - C-REACTIVE PROTEIN INCREASED [None]
  - ERYTHEMA [None]
  - PYREXIA [None]
  - WHITE BLOOD CELL COUNT DECREASED [None]
